FAERS Safety Report 25017649 (Version 3)
Quarter: 2025Q4

REPORT INFORMATION
  Report Type: Report from Study
  Country: US (occurrence: US)
  Receive Date: 20250227
  Receipt Date: 20251201
  Transmission Date: 20260117
  Serious: Yes (Other)
  Sender: STEMLINE THERAPEUTICS
  Company Number: US-STEMLINE THERAPEUTICS, INC-2025-STML-US000697

PATIENT

DRUGS (2)
  1. ORSERDU [Suspect]
     Active Substance: ELACESTRANT
     Indication: Breast cancer female
     Dosage: 1 DOSAGE FORM, DAILY (1 MG) (Q 24)
     Route: 065
     Dates: start: 20241125
  2. ORSERDU [Suspect]
     Active Substance: ELACESTRANT
     Indication: Bone cancer

REACTIONS (3)
  - Femur fracture [Unknown]
  - Malignant neoplasm progression [Not Recovered/Not Resolved]
  - Metastasis [Not Recovered/Not Resolved]
